APPROVED DRUG PRODUCT: PRAMIPEXOLE DIHYDROCHLORIDE
Active Ingredient: PRAMIPEXOLE DIHYDROCHLORIDE
Strength: 0.75MG
Dosage Form/Route: TABLET, EXTENDED RELEASE;ORAL
Application: A212797 | Product #002 | TE Code: AB
Applicant: XIAMEN LP PHARMACUETICAL CO LTD
Approved: Jun 11, 2021 | RLD: No | RS: No | Type: RX